FAERS Safety Report 7718666-7 (Version None)
Quarter: 2011Q3

REPORT INFORMATION
  Report Type: 
  Country: None (occurrence: None)
  Receive Date: 20110830
  Receipt Date: 20110823
  Transmission Date: 20111222
  Serious: Yes (Other)
  Sender: FDA-Public Use
  Company Number: US-PERRIGO-11US006360

PATIENT
  Sex: Female
  Weight: 81.633 kg

DRUGS (7)
  1. LORTAB [Suspect]
     Indication: PRODUCT USED FOR UNKNOWN INDICATION
     Dosage: UNK
     Route: 048
     Dates: end: 20110728
  2. ALLOPURINOL [Concomitant]
     Indication: GOUT
     Dosage: UNK
     Route: 048
  3. ANTIHYPERTENSIVES [Concomitant]
     Indication: HYPERTENSION
     Dosage: UNK
     Route: 048
  4. ACETAMINOPHEN [Suspect]
     Indication: ARTHRITIS
     Dosage: 500 MG,  TWICE
     Route: 048
     Dates: start: 20110802, end: 20110803
  5. PLAVIX [Concomitant]
     Indication: ANTICOAGULANT THERAPY
     Dosage: UNK
     Route: 048
  6. THYROID THERAPY [Concomitant]
     Indication: THYROID DISORDER
     Dosage: UNK
     Route: 048
  7. CYMBALTA [Suspect]
     Indication: PRODUCT USED FOR UNKNOWN INDICATION
     Dosage: UNK
     Route: 048
     Dates: end: 20110728

REACTIONS (1)
  - HALLUCINATION [None]
